FAERS Safety Report 18140617 (Version 3)
Quarter: 2021Q3

REPORT INFORMATION
  Report Type: Spontaneous
  Country: US (occurrence: US)
  Receive Date: 20200812
  Receipt Date: 20210727
  Transmission Date: 20211014
  Serious: Yes (Other)
  Sender: FDA-Public Use
  Company Number: US-PFIZER INC-2020307710

PATIENT
  Age: 51 Year
  Sex: Male

DRUGS (1)
  1. PHENYTOIN SODIUM. [Suspect]
     Active Substance: PHENYTOIN SODIUM
     Dosage: UNK

REACTIONS (3)
  - Feeling abnormal [Unknown]
  - Weight increased [Unknown]
  - Seizure [Unknown]

NARRATIVE: CASE EVENT DATE: 2019
